FAERS Safety Report 6426455-9 (Version None)
Quarter: 2009Q4

REPORT INFORMATION
  Report Type: 
  Country: None (occurrence: None)
  Receive Date: 20091104
  Receipt Date: 20091027
  Transmission Date: 20100525
  Serious: Yes (Hospitalization, Other)
  Sender: FDA-Public Use
  Company Number: PHEH2009US14609

PATIENT
  Sex: Male

DRUGS (1)
  1. EXJADE [Suspect]
     Indication: HAEMATOLOGICAL MALIGNANCY
     Dosage: 2500 MG, QD
     Route: 048
     Dates: start: 20061020

REACTIONS (2)
  - PYREXIA [None]
  - SURGERY [None]
